FAERS Safety Report 9373595 (Version 1)
Quarter: 2013Q2

REPORT INFORMATION
  Report Type: Spontaneous
  Country: US (occurrence: US)
  Receive Date: 20130627
  Receipt Date: 20130627
  Transmission Date: 20140414
  Serious: Yes (Other)
  Sender: FDA-Public Use
  Company Number: PHEH2013US013535

PATIENT
  Age: 53 Year
  Sex: Female
  Weight: 68 kg

DRUGS (1)
  1. FEMARA [Suspect]

REACTIONS (5)
  - Nausea [Unknown]
  - Insomnia [Unknown]
  - Alopecia [Unknown]
  - Hot flush [Unknown]
  - Anaemia [Unknown]
